FAERS Safety Report 21260417 (Version 1)
Quarter: 2022Q3

REPORT INFORMATION
  Report Type: Spontaneous
  Country: CN (occurrence: None)
  Receive Date: 20220826
  Receipt Date: 20220826
  Transmission Date: 20221026
  Serious: Yes (Hospitalization, Other)
  Sender: FDA-Public Use
  Company Number: 2022A294933

PATIENT
  Age: 63 Year
  Sex: Male
  Weight: 75 kg

DRUGS (6)
  1. TICAGRELOR [Suspect]
     Active Substance: TICAGRELOR
     Indication: Prophylaxis
     Route: 048
     Dates: start: 20200330, end: 20220216
  2. METOPROLOL SUCCINATE [Concomitant]
     Active Substance: METOPROLOL SUCCINATE
     Indication: Blood pressure abnormal
     Route: 048
     Dates: start: 19990831, end: 20220817
  3. ROSUVASTATIN [Concomitant]
     Active Substance: ROSUVASTATIN
     Indication: Coronary artery disease
     Route: 048
     Dates: start: 20200330, end: 20220817
  4. ROSUVASTATIN [Concomitant]
     Active Substance: ROSUVASTATIN
     Indication: Myocardial infarction
     Route: 048
     Dates: start: 20200330, end: 20220817
  5. INSULIN ASPART [Concomitant]
     Active Substance: INSULIN ASPART
     Indication: Blood glucose abnormal
     Route: 058
     Dates: start: 20180502, end: 20220817
  6. ASPIRIN [Concomitant]
     Active Substance: ASPIRIN
     Indication: Thrombosis
     Route: 048
     Dates: start: 20180103, end: 20220817

REACTIONS (9)
  - Dyspepsia [Recovered/Resolved]
  - Pyrexia [Recovered/Resolved]
  - Skin warm [Recovered/Resolved]
  - Decreased appetite [Recovering/Resolving]
  - Injection site mass [Recovering/Resolving]
  - Yellow skin [Unknown]
  - Dysphagia [Unknown]
  - Weight decreased [Unknown]
  - Injection site discolouration [Unknown]

NARRATIVE: CASE EVENT DATE: 20200508
